FAERS Safety Report 8758545 (Version 1)
Quarter: 2012Q4

REPORT INFORMATION
  Report Type: Spontaneous
  Country: US (occurrence: None)
  Receive Date: 20120828
  Receipt Date: 20120828
  Transmission Date: 20130627
  Serious: Yes (Life-Threatening, Hospitalization)
  Sender: FDA-Public Use
  Company Number: None

PATIENT
  Sex: Female
  Weight: 72.58 kg

DRUGS (1)
  1. PREMARIN [Suspect]
     Dates: start: 19850625, end: 20021202

REACTIONS (2)
  - Myocardial infarction [None]
  - Cholecystectomy [None]
